FAERS Safety Report 9868974 (Version 1)
Quarter: 2014Q1

REPORT INFORMATION
  Report Type: Spontaneous
  Country: CA (occurrence: CA)
  Receive Date: 20140205
  Receipt Date: 20140205
  Transmission Date: 20141002
  Serious: Yes (Other)
  Sender: FDA-Public Use
  Company Number: CA-ROCHE-1343667

PATIENT
  Sex: Male

DRUGS (2)
  1. AVASTIN [Suspect]
     Indication: AGE-RELATED MACULAR DEGENERATION
     Dosage: SECOND BEVACIZUMAB DOSE ON 20/JAN/2014
     Route: 065
     Dates: start: 20131218
  2. ASPIRIN [Concomitant]

REACTIONS (2)
  - Macular degeneration [Unknown]
  - Off label use [Unknown]
